FAERS Safety Report 6680338-8 (Version None)
Quarter: 2010Q2

REPORT INFORMATION
  Report Type: 
  Country: None (occurrence: None)
  Receive Date: 20100412
  Receipt Date: 20100322
  Transmission Date: 20101027
  Serious: Yes (Other)
  Sender: FDA-Public Use
  Company Number: CL-82-2010

PATIENT
  Age: 44 Year
  Sex: Female

DRUGS (12)
  1. ONDANSETRON (ONDANSETRON) UNK [Suspect]
     Indication: PROPHYLAXIS OF NAUSEA AND VOMITING
     Dosage: 4 MG DAILY, INTRAVENOUS
     Route: 042
  2. QUETIAPINE (QUETIAPINE) UNK [Suspect]
  3. DULOXETINE (DULOXETINE) UNK [Suspect]
  4. FENTANYL (FENTANYL) UNK [Suspect]
     Indication: INDUCTION OF ANAESTHESIA
     Dosage: 100 UG DAILY, INTRAVENOU
     Route: 042
  5. LITHUM UNK UNK [Suspect]
  6. CLONAZEPAM [Concomitant]
  7. LAMOTRIGINE [Concomitant]
  8. TOPIRAMATE [Concomitant]
  9. PROPOFOL [Concomitant]
  10. ROCURONIUM BROMIDE [Concomitant]
  11. DESFLURANE [Concomitant]
  12. ROCURONIUM BROMIDE [Concomitant]

REACTIONS (4)
  - APHASIA [None]
  - DISTURBANCE IN ATTENTION [None]
  - NYSTAGMUS [None]
  - SEROTONIN SYNDROME [None]
